FAERS Safety Report 25976198 (Version 2)
Quarter: 2025Q4

REPORT INFORMATION
  Report Type: Spontaneous
  Country: EU (occurrence: EU)
  Receive Date: 20251029
  Receipt Date: 20251107
  Transmission Date: 20260117
  Serious: Yes (Death, Life-Threatening, Other)
  Sender: NOVO NORDISK
  Company Number: EU-NOVOPROD-1368407

PATIENT
  Age: 69 Year

DRUGS (2)
  1. NOVOEIGHT [Suspect]
     Active Substance: ANTIHEMOPHILIC FACTOR, HUMAN RECOMBINANT
     Indication: Factor VIII deficiency
     Dosage: UNK
  2. ELBASVIR\GRAZOPREVIR [Concomitant]
     Active Substance: ELBASVIR\GRAZOPREVIR
     Indication: Chronic hepatitis C
     Dosage: UNK
     Dates: start: 2018

REACTIONS (6)
  - Cardiac failure [Fatal]
  - Hepatic encephalopathy [Fatal]
  - Renal failure [Fatal]
  - Hepatic cancer [Unknown]
  - Hepatic cirrhosis [Unknown]
  - Haemophilic arthropathy [Unknown]

NARRATIVE: CASE EVENT DATE: 20140101
